FAERS Safety Report 15946926 (Version 1)
Quarter: 2019Q1

REPORT INFORMATION
  Report Type: Spontaneous
  Country: US (occurrence: US)
  Receive Date: 20190211
  Receipt Date: 20190211
  Transmission Date: 20190417
  Serious: No
  Sender: FDA-Public Use
  Company Number: US-BAYER-2019-024051

PATIENT
  Age: 80 Year
  Sex: Male
  Weight: 81.18 kg

DRUGS (6)
  1. MIGRAINE HEADACHE RELIEF [Concomitant]
     Dosage: UNK
  2. ALEVE BACK AND MUSCLE PAIN [Suspect]
     Active Substance: NAPROXEN SODIUM
     Dosage: 1 DF(EVERY 2-3 DAYS)
     Route: 048
     Dates: start: 201901, end: 201901
  3. SLEEPING [TRIAZOLAM] [Concomitant]
     Dosage: UNK
  4. ALEVE [Suspect]
     Active Substance: NAPROXEN SODIUM
     Indication: PAIN
     Dosage: 1 DF (2-4 DAYS)
     Route: 048
     Dates: start: 2018
  5. HEART HEALTH [Concomitant]
     Dosage: UNK
  6. ANTICOAGULATION [Concomitant]
     Active Substance: UNSPECIFIED INGREDIENT
     Dosage: UNK

REACTIONS (4)
  - Inappropriate schedule of product administration [Unknown]
  - Drug effect prolonged [Unknown]
  - Drug ineffective [Unknown]
  - Inappropriate schedule of product administration [Unknown]

NARRATIVE: CASE EVENT DATE: 201901
